FAERS Safety Report 8127016-6 (Version None)
Quarter: 2012Q1

REPORT INFORMATION
  Report Type: 
  Country: None (occurrence: None)
  Receive Date: 20120210
  Receipt Date: 20120131
  Transmission Date: 20120608
  Serious: Yes (Other)
  Sender: FDA-Public Use
  Company Number: MA-JNJFOC-20111105852

PATIENT
  Age: 16 Year
  Sex: Female

DRUGS (3)
  1. REMICADE [Suspect]
     Indication: CROHN'S DISEASE
     Dosage: 1ST TO 3RD INFUSION
     Route: 042
  2. IMURAN [Concomitant]
     Indication: CROHN'S DISEASE
     Route: 048
  3. REMICADE [Suspect]
     Dosage: 4 TH INFUSION
     Route: 042

REACTIONS (6)
  - RASH [None]
  - INFUSION RELATED REACTION [None]
  - HEMIPARESIS [None]
  - DYSPNOEA [None]
  - CYTOMEGALOVIRUS INFECTION [None]
  - HEMIPLEGIA [None]
